FAERS Safety Report 8121335-5 (Version None)
Quarter: 2011Q4

REPORT INFORMATION
  Report Type: 
  Country: None (occurrence: None)
  Receive Date: 20111227
  Receipt Date: 20110913
  Transmission Date: 20120403
  Serious: No
  Sender: FDA-Public Use
  Company Number: PHEH2011US04137

PATIENT
  Age: 30 Year
  Sex: Female
  Weight: 51 kg

DRUGS (3)
  1. MITOXANTRONE [Concomitant]
  2. GILENYA [Suspect]
     Indication: MULTIPLE SCLEROSIS
     Dosage: 1 DF, DAILY, ORAL
     Route: 048
     Dates: start: 20110902
  3. INTERFERON BETA-1A [Concomitant]

REACTIONS (7)
  - PAIN [None]
  - FATIGUE [None]
  - NAUSEA [None]
  - MOOD ALTERED [None]
  - VISUAL ACUITY REDUCED [None]
  - MEMORY IMPAIRMENT [None]
  - VISUAL IMPAIRMENT [None]
